FAERS Safety Report 8418675-9 (Version None)
Quarter: 2012Q2

REPORT INFORMATION
  Report Type: 
  Country: None (occurrence: None)
  Receive Date: 20120607
  Receipt Date: 20120605
  Transmission Date: 20120825
  Serious: Yes (Hospitalization)
  Sender: FDA-Public Use
  Company Number: ES-AMGEN-ESPCT2012034969

PATIENT
  Age: 47 Year
  Sex: Female

DRUGS (5)
  1. FLUOROURACIL [Concomitant]
     Dosage: 6920 MG, Q2WK
     Route: 042
     Dates: start: 20120430
  2. AUGMENTIN [Concomitant]
     Dosage: 500 MG, Q8H
     Route: 048
     Dates: start: 20120528, end: 20120531
  3. METHYLPREDNISOLONE [Concomitant]
     Dosage: 8 MG, Q8H
     Route: 048
     Dates: start: 20120528, end: 20120531
  4. MITOMYCIN [Concomitant]
     Dosage: 17.3 MG, Q2WK
     Route: 042
     Dates: start: 20120430
  5. PANITUMUMAB [Suspect]
     Indication: ANAL CANCER
     Dosage: 420 MG, Q2WK
     Route: 042
     Dates: start: 20120430

REACTIONS (3)
  - PERINEAL PAIN [None]
  - NEUTROPENIA [None]
  - PYREXIA [None]
